FAERS Safety Report 6164555-1 (Version None)
Quarter: 2009Q2

REPORT INFORMATION
  Report Type: 
  Country: None (occurrence: None)
  Receive Date: 20090423
  Receipt Date: 20090415
  Transmission Date: 20091009
  Serious: Yes (Hospitalization)
  Sender: FDA-Public Use
  Company Number: US-BAYER-200917136NA

PATIENT
  Age: 52 Year
  Sex: Female

DRUGS (3)
  1. BETASERON [Suspect]
     Indication: RELAPSING-REMITTING MULTIPLE SCLEROSIS
     Route: 058
     Dates: start: 19950101, end: 20080801
  2. TYSABRI [Concomitant]
     Dates: start: 20081001
  3. MULTI-VITAMINS [Concomitant]

REACTIONS (4)
  - FALL [None]
  - JOINT SPRAIN [None]
  - MULTIPLE SCLEROSIS [None]
  - NEUTRALISING ANTIBODIES POSITIVE [None]
